FAERS Safety Report 4831934-1 (Version None)
Quarter: 2005Q4

REPORT INFORMATION
  Report Type: 
  Country: None (occurrence: None)
  Receive Date: 20051116
  Receipt Date: 20051031
  Transmission Date: 20060501
  Serious: Yes (Hospitalization)
  Sender: FDA-Public Use
  Company Number: 2005-0008441

PATIENT
  Age: 64 Year
  Sex: Male
  Weight: 68 kg

DRUGS (12)
  1. EMTRIVA [Suspect]
     Indication: HIV INFECTION
     Dosage: ORAL
     Route: 048
     Dates: start: 20050315
  2. VIREAD [Suspect]
     Indication: HIV INFECTION
     Dosage: ORAL
     Route: 048
     Dates: start: 20050315, end: 20050525
  3. NORVIR [Concomitant]
  4. REYATAZ [Concomitant]
  5. LASILIX (FUROSEMIDE/00032601) [Concomitant]
  6. ALDACTONE [Concomitant]
  7. LIPANTHYL (FENOFIBRATE) [Concomitant]
  8. APROVEL (IRBESARTAN) [Concomitant]
  9. POTASSIUM CHLORIDE [Concomitant]
  10. PREVISCAN (FLUINDIONE) [Concomitant]
  11. VINCRISTINE (VINCRISTINE/00078801/) [Concomitant]
  12. BLEOMYCIN [Concomitant]

REACTIONS (3)
  - ANGIOPLASTY [None]
  - FANCONI SYNDROME [None]
  - RENAL FAILURE ACUTE [None]
